FAERS Safety Report 17098171 (Version 1)
Quarter: 2019Q4

REPORT INFORMATION
  Report Type: Spontaneous
  Country: US (occurrence: US)
  Receive Date: 20191105
  Receipt Date: 20191105
  Transmission Date: 20200122
  Serious: Yes (Hospitalization)
  Sender: FDA-Public Use
  Company Number: None

PATIENT
  Age: 67 Year
  Sex: Male
  Weight: 100 kg

DRUGS (2)
  1. CISPLATIN. [Suspect]
     Active Substance: CISPLATIN
     Indication: PROSTATE CANCER
     Route: 042
  2. ENZALUTAMIDE 160 MG CATALENT PHARMA SOLUTIONS FOR ASTELLA [Suspect]
     Active Substance: ENZALUTAMIDE
     Indication: PROSTATE CANCER
     Route: 048

REACTIONS (7)
  - Insomnia [None]
  - Muscle spasms [None]
  - Gastrooesophageal reflux disease [None]
  - Chest discomfort [None]
  - Infusion site pain [None]
  - Pain [None]
  - Nausea [None]

NARRATIVE: CASE EVENT DATE: 20190618
